FAERS Safety Report 8193140-5 (Version None)
Quarter: 2012Q1

REPORT INFORMATION
  Report Type: 
  Country: None (occurrence: None)
  Receive Date: 20120308
  Receipt Date: 20120305
  Transmission Date: 20120608
  Serious: Yes (Hospitalization)
  Sender: FDA-Public Use
  Company Number: US-AMGEN-USACT2011048894

PATIENT
  Age: 60 Year
  Sex: Male
  Weight: 85.5 kg

DRUGS (26)
  1. TRAMADOL HCL [Concomitant]
     Indication: PAIN
     Dosage: 50 MG, UNK
     Route: 048
     Dates: start: 20110217
  2. ASPIRIN [Concomitant]
     Dosage: 81 MG, UNK
     Route: 048
     Dates: start: 20110610
  3. ACETAMINOPHEN [Concomitant]
     Indication: PAIN
     Dosage: 325 MG, UNK
     Route: 048
     Dates: start: 20110523
  4. LOPERAMIDE HCL [Concomitant]
     Indication: DIARRHOEA
     Dosage: 2 MG, UNK
     Route: 048
     Dates: start: 20110309
  5. DIPHENHYDRAMINE HCL [Concomitant]
     Dosage: 50 MG, UNK
     Route: 048
     Dates: start: 20040114
  6. KETOROLAC TROMETHAMINE [Concomitant]
     Indication: EYE PAIN
     Dosage: UNK
     Route: 047
     Dates: start: 20110322
  7. IBUPROFEN [Concomitant]
     Indication: PAIN
     Dosage: 800 MG, UNK
     Route: 048
     Dates: start: 20020607, end: 20110724
  8. NEPHROCAPS [Concomitant]
     Indication: RENAL FAILURE CHRONIC
     Dosage: UNK
     Route: 048
     Dates: start: 20020328
  9. EPOGEN [Concomitant]
     Dosage: UNK
     Route: 058
  10. DIPHENOXYLATE HCL + ATROPINE SULFATE [Concomitant]
     Indication: DIARRHOEA
     Dosage: 2.525 MG, UNK
     Route: 048
     Dates: start: 20110513, end: 20111113
  11. LEVITRA [Concomitant]
     Indication: ERECTILE DYSFUNCTION
     Dosage: 20 MG, UNK
     Route: 048
     Dates: start: 20110606
  12. AUGMENTIN '125' [Concomitant]
     Indication: INFECTION
     Dosage: UNK
     Route: 048
     Dates: start: 20110629, end: 20110709
  13. CINACALCET HYDROCHLORIDE [Suspect]
     Indication: HYPERPARATHYROIDISM SECONDARY
     Dosage: 30 MG, UNK
     Dates: start: 20110518
  14. PRAVASTATIN [Concomitant]
     Indication: BLOOD CHOLESTEROL INCREASED
     Dosage: 20 MG, UNK
     Route: 048
     Dates: start: 20080415
  15. ALBUTEROL [Concomitant]
     Indication: ASTHMA
     Dosage: 90 MUG, UNK
     Route: 055
     Dates: start: 20090928
  16. ATENOLOL AND CHLORTHALIDONE [Concomitant]
     Dosage: 75 MG, UNK
     Route: 048
     Dates: start: 20110610
  17. GABAPENTIN [Concomitant]
     Indication: PAIN
     Dosage: 100 MG, UNK
     Route: 048
     Dates: start: 20110418
  18. HYDROCORTISONE [Concomitant]
     Indication: RASH
     Dosage: UNK
     Route: 061
     Dates: start: 20110401
  19. HEPARIN [Concomitant]
     Dosage: UNK
     Route: 042
     Dates: start: 20020301
  20. SILVER SULFADIAZINE [Concomitant]
     Indication: INFECTION
     Dosage: UNK
     Route: 061
     Dates: start: 20110712, end: 20110811
  21. CALCIUM ACETATE [Concomitant]
     Dosage: 1334 MG, UNK
     Route: 048
     Dates: start: 20110603, end: 20110921
  22. ACETAMINOPHEN [Concomitant]
     Indication: PYREXIA
  23. OMEPRAZOLE [Concomitant]
     Dosage: 20 MG, UNK
     Route: 048
     Dates: start: 20100924
  24. PANCRELIPASE [Concomitant]
     Indication: PANCREATIC INSUFFICIENCY
     Dosage: UNK
     Route: 048
     Dates: start: 20110128, end: 20110921
  25. CREON [Concomitant]
     Indication: PANCREATIC INSUFFICIENCY
     Dosage: UNK
     Route: 048
     Dates: start: 20101209, end: 20110921
  26. TRIAMCINOLONE ACETATE [Concomitant]
     Indication: RASH
     Dosage: UNK
     Route: 061
     Dates: start: 20110422

REACTIONS (1)
  - HYPOPHOSPHATAEMIA [None]
